FAERS Safety Report 13291240 (Version 4)
Quarter: 2017Q2

REPORT INFORMATION
  Report Type: Report from Study
  Country: JP (occurrence: JP)
  Receive Date: 20170303
  Receipt Date: 20170530
  Transmission Date: 20170830
  Serious: Yes (Life-Threatening, Hospitalization)
  Sender: FDA-Public Use
  Company Number: PHJP2017JP006756

PATIENT
  Age: 20 Year
  Sex: Male
  Weight: 44.5 kg

DRUGS (16)
  1. PROGRAF [Concomitant]
     Active Substance: TACROLIMUS\TACROLIMUS ANHYDROUS
     Dosage: 4.6 MG, UNK
     Route: 048
     Dates: start: 20160108, end: 20160201
  2. CERTICAN [Suspect]
     Active Substance: EVEROLIMUS
     Dosage: 1.0 MG, UNK
     Route: 048
     Dates: start: 20160408, end: 20160602
  3. PREDONINE [Concomitant]
     Active Substance: PREDNISOLONE
     Dosage: 7 MG, UNK
     Route: 048
     Dates: start: 20160208, end: 20160706
  4. PROGRAF [Concomitant]
     Active Substance: TACROLIMUS\TACROLIMUS ANHYDROUS
     Indication: PRODUCT USED FOR UNKNOWN INDICATION
     Dosage: 4.6 MG, UNK
     Route: 048
     Dates: start: 20151108, end: 20160108
  5. PROGRAF [Concomitant]
     Active Substance: TACROLIMUS\TACROLIMUS ANHYDROUS
     Dosage: 4.4 MG, UNK
     Route: 048
     Dates: start: 20160623, end: 20160706
  6. BAKTAR [Concomitant]
     Active Substance: SULFAMETHOXAZOLE\TRIMETHOPRIM
     Indication: PROPHYLAXIS
     Dosage: 2 DF, BID
     Route: 048
     Dates: start: 20151108, end: 20160706
  7. CERTICAN [Suspect]
     Active Substance: EVEROLIMUS
     Dosage: 1.25 MG, UNK
     Route: 048
     Dates: start: 20160603, end: 20160706
  8. MYCOPHENOLATE [Concomitant]
     Active Substance: MYCOPHENOLIC ACID
     Indication: PRODUCT USED FOR UNKNOWN INDICATION
     Dosage: 1750 MG, UNK
     Route: 048
     Dates: start: 20151108, end: 20160108
  9. VALIXA [Concomitant]
     Active Substance: VALGANCICLOVIR
     Indication: PROPHYLAXIS
     Dosage: 900 MG, UNK
     Route: 048
     Dates: start: 20151108, end: 20160706
  10. PRAVASTATIN NA [Concomitant]
     Active Substance: PRAVASTATIN SODIUM
     Indication: PROPHYLAXIS
     Dosage: 5 MG, UNK
     Route: 048
     Dates: start: 20151109, end: 20160706
  11. PREDONINE [Concomitant]
     Active Substance: PREDNISOLONE
     Indication: PRODUCT USED FOR UNKNOWN INDICATION
     Dosage: 10 MG, UNK
     Route: 048
     Dates: start: 20151108, end: 20160207
  12. PROGRAF [Concomitant]
     Active Substance: TACROLIMUS\TACROLIMUS ANHYDROUS
     Dosage: 4.8 MG, UNK
     Route: 048
     Dates: start: 20160202, end: 20160408
  13. PROGRAF [Concomitant]
     Active Substance: TACROLIMUS\TACROLIMUS ANHYDROUS
     Dosage: 4.8 MG, UNK
     Route: 048
     Dates: start: 20160408, end: 20160530
  14. PROGRAF [Concomitant]
     Active Substance: TACROLIMUS\TACROLIMUS ANHYDROUS
     Dosage: 4.6 MG, UNK
     Route: 048
     Dates: start: 20160531, end: 20160622
  15. RENIVACE [Concomitant]
     Active Substance: ENALAPRIL
     Indication: PROPHYLAXIS
     Dosage: 2.5 MG, QD
     Route: 048
     Dates: start: 20151109, end: 20160706
  16. CERTICAN [Suspect]
     Active Substance: EVEROLIMUS
     Indication: HEART TRANSPLANT
     Dosage: 1.0 MG, UNK
     Route: 048
     Dates: start: 20160108, end: 20160408

REACTIONS (9)
  - Cytomegalovirus gastroenteritis [Recovered/Resolved]
  - Blood creatinine decreased [Unknown]
  - Blood urea decreased [Unknown]
  - Gastrointestinal perforation [Recovered/Resolved]
  - Haemoglobin decreased [Unknown]
  - Melaena [Unknown]
  - Concomitant disease aggravated [Recovered/Resolved]
  - Abdominal pain [Unknown]
  - Haematocrit decreased [Unknown]

NARRATIVE: CASE EVENT DATE: 20160112
